FAERS Safety Report 17407391 (Version 1)
Quarter: 2020Q1

REPORT INFORMATION
  Report Type: Spontaneous
  Country: PL (occurrence: PL)
  Receive Date: 20200212
  Receipt Date: 20200212
  Transmission Date: 20200409
  Serious: Yes (Death)
  Sender: FDA-Public Use
  Company Number: PL-BAYER-2020-024906

PATIENT

DRUGS (3)
  1. INTERFERON BETA - 1B [Suspect]
     Active Substance: INTERFERON BETA-1B
     Indication: SYSTEMIC MASTOCYTOSIS
     Dosage: UNK
     Route: 065
  2. MIDOSTAURIN [Suspect]
     Active Substance: MIDOSTAURIN
     Indication: SYSTEMIC MASTOCYTOSIS
     Dosage: 200 MG, QD
     Route: 065
     Dates: start: 201805, end: 201807
  3. CLADRIBINE. [Concomitant]
     Active Substance: CLADRIBINE

REACTIONS (2)
  - Malignant neoplasm progression [Fatal]
  - Systemic mastocytosis [Fatal]
